FAERS Safety Report 5762559-1 (Version None)
Quarter: 2008Q2

REPORT INFORMATION
  Report Type: 
  Country: None (occurrence: None)
  Receive Date: 20080609
  Receipt Date: 20080529
  Transmission Date: 20081010
  Serious: Yes (Hospitalization)
  Sender: FDA-Public Use
  Company Number: B0522810A

PATIENT
  Age: 82 Year
  Sex: Female

DRUGS (5)
  1. AUGMENTIN '125' [Suspect]
     Route: 048
     Dates: start: 20080213, end: 20080216
  2. PREVISCAN [Suspect]
     Route: 048
     Dates: end: 20080216
  3. FLECAINIDE ACETATE [Concomitant]
     Dosage: .5TAB PER DAY
     Route: 048
  4. TANAKAN [Concomitant]
     Indication: PROPHYLAXIS
     Route: 048
     Dates: end: 20080222
  5. NEURONTIN [Concomitant]
     Indication: NEUROPATHY PERIPHERAL
     Dosage: 100MG THREE TIMES PER DAY
     Route: 048
     Dates: end: 20080312

REACTIONS (6)
  - GASTROINTESTINAL HAEMORRHAGE [None]
  - HAEMATEMESIS [None]
  - HAEMOGLOBIN DECREASED [None]
  - HELICOBACTER INFECTION [None]
  - HIATUS HERNIA [None]
  - THROMBOSIS [None]
